FAERS Safety Report 16045980 (Version 1)
Quarter: 2019Q1

REPORT INFORMATION
  Report Type: Spontaneous
  Country: US (occurrence: US)
  Receive Date: 20190307
  Receipt Date: 20190307
  Transmission Date: 20190418
  Serious: Yes (Hospitalization, Other)
  Sender: FDA-Public Use
  Company Number: US-TORRENT-00007735

PATIENT
  Age: 80 Year
  Sex: Female

DRUGS (1)
  1. LOSARTAN AND HYDROCHLOROTHIAZIDE [Suspect]
     Active Substance: HYDROCHLOROTHIAZIDE\LOSARTAN POTASSIUM
     Indication: HYPERTENSION

REACTIONS (3)
  - Acute generalised exanthematous pustulosis [Recovered/Resolved]
  - Loss of personal independence in daily activities [Recovered/Resolved]
  - Impetigo [Recovered/Resolved]
